FAERS Safety Report 4770957-8 (Version None)
Quarter: 2005Q3

REPORT INFORMATION
  Report Type: 
  Country: None (occurrence: None)
  Receive Date: 20050914
  Receipt Date: 20050829
  Transmission Date: 20060218
  Serious: Yes (Other)
  Sender: FDA-Public Use
  Company Number: CA_050407991

PATIENT
  Age: 79 Year
  Sex: Female
  Weight: 65.7716 kg

DRUGS (9)
  1. FORTEO [Suspect]
     Indication: OSTEOPOROSIS
     Dosage: 20 UG DAY
     Dates: start: 20050329
  2. PRAVACHOL [Concomitant]
  3. NORVASC [Concomitant]
  4. ALTACE [Concomitant]
  5. EZETROL (EZETIMIBE) [Concomitant]
  6. LOSEC (OMEPRAZOLE SODIUM) [Concomitant]
  7. CALCIUM GLUCONATE [Concomitant]
  8. ASCORBIC ACID [Concomitant]
  9. CLINDAMYCIN [Concomitant]

REACTIONS (10)
  - ABDOMINAL DISTENSION [None]
  - ABDOMINAL PAIN UPPER [None]
  - CONSTIPATION [None]
  - DIARRHOEA [None]
  - MALAISE [None]
  - NAUSEA [None]
  - PANCREATITIS [None]
  - SKIN INFECTION [None]
  - SYNCOPE [None]
  - WEIGHT DECREASED [None]
